FAERS Safety Report 5869903-5 (Version None)
Quarter: 2008Q3

REPORT INFORMATION
  Report Type: 
  Country: None (occurrence: None)
  Receive Date: 20080904
  Receipt Date: 20080825
  Transmission Date: 20090109
  Serious: Yes (Hospitalization, Other)
  Sender: FDA-Public Use
  Company Number: PHHY2008DE19190

PATIENT
  Sex: Female

DRUGS (3)
  1. ZOMETA [Suspect]
     Indication: METASTASES TO BONE
     Dosage: 4 MG, QMO
     Route: 042
     Dates: start: 20080118
  2. DOCETAXEL [Concomitant]
     Indication: BREAST CANCER
     Dosage: 400 MG/ M^2 BODY SURFACE
     Route: 042
     Dates: start: 20080605
  3. RADIOTHERAPY [Concomitant]
     Indication: BREAST CANCER
     Dosage: 5 CYCLES
     Dates: start: 20080820, end: 20080822

REACTIONS (2)
  - SURGERY [None]
  - THROMBOCYTOPENIA [None]
